FAERS Safety Report 10394004 (Version 1)
Quarter: 2014Q3

REPORT INFORMATION
  Report Type: Spontaneous
  Country: US (occurrence: US)
  Receive Date: 20140819
  Receipt Date: 20140819
  Transmission Date: 20150326
  Serious: Yes (Other)
  Sender: FDA-Public Use
  Company Number: US-PFIZER INC-2014228429

PATIENT
  Sex: Male

DRUGS (1)
  1. TOVIAZ [Suspect]
     Active Substance: FESOTERODINE FUMARATE
     Dosage: UNK (HAS BEEN TAKING IT FOR 3 WEEKS)

REACTIONS (3)
  - Abdominal discomfort [Unknown]
  - Urinary retention [Unknown]
  - Pollakiuria [Unknown]
